FAERS Safety Report 16030750 (Version 1)
Quarter: 2019Q1

REPORT INFORMATION
  Report Type: Spontaneous
  Country: US (occurrence: US)
  Receive Date: 20190304
  Receipt Date: 20190304
  Transmission Date: 20190418
  Serious: No
  Sender: FDA-Public Use
  Company Number: US-PFIZER INC-2019082532

PATIENT
  Age: 76 Year
  Sex: Female
  Weight: 115.6 kg

DRUGS (2)
  1. LYRICA [Suspect]
     Active Substance: PREGABALIN
     Indication: DIABETIC NEUROPATHY
     Dosage: 50 MG, 2X/DAY
     Route: 048
     Dates: start: 201808
  2. CELEBREX [Suspect]
     Active Substance: CELECOXIB
     Indication: KNEE OPERATION
     Dosage: UNK
     Dates: start: 2009, end: 2018

REACTIONS (4)
  - Poor quality product administered [Unknown]
  - Drug ineffective for unapproved indication [Unknown]
  - Product complaint [Unknown]
  - Product use issue [Unknown]

NARRATIVE: CASE EVENT DATE: 201808
